FAERS Safety Report 9411681 (Version 1)
Quarter: 2013Q3

REPORT INFORMATION
  Report Type: Spontaneous
  Country: US (occurrence: US)
  Receive Date: 20130722
  Receipt Date: 20130722
  Transmission Date: 20140515
  Serious: Yes (Hospitalization)
  Sender: FDA-Public Use
  Company Number: US-SUN PHARMACEUTICAL INDUSTRIES LTD-2013SUN01062

PATIENT
  Sex: 0

DRUGS (2)
  1. HYDROCODONE BITARTRATE/ACETAMINOPHEN TABLET 5MG/500MG [Suspect]
     Indication: BACK PAIN
     Dosage: 5 MG/ 500 MG FOUR TIMES DAILY
     Route: 065
  2. HYDROCODONE BITARTRATE/ACETAMINOPHEN TABLET 5MG/500MG [Suspect]
     Indication: ARTHRALGIA

REACTIONS (11)
  - Insomnia [Recovered/Resolved]
  - Electrocardiogram QT prolonged [Recovered/Resolved]
  - Drug withdrawal syndrome [Recovered/Resolved]
  - Hallucination, auditory [Recovered/Resolved]
  - Hallucination, visual [Recovered/Resolved]
  - Delusion [Recovered/Resolved]
  - Mental status changes [Recovered/Resolved]
  - Myoclonus [Recovered/Resolved]
  - Decreased appetite [Recovering/Resolving]
  - Nausea [Recovering/Resolving]
  - Vomiting [Recovering/Resolving]
